FAERS Safety Report 5545898-9 (Version None)
Quarter: 2007Q4

REPORT INFORMATION
  Report Type: 
  Country: None (occurrence: None)
  Receive Date: 20071211
  Receipt Date: 20071012
  Transmission Date: 20080405
  Serious: No
  Sender: FDA-Public Use
  Company Number: US-ASTRAZENECA-2007UW23749

PATIENT
  Age: 43 Year
  Sex: Female
  Weight: 129.3 kg

DRUGS (11)
  1. SYMBICORT [Suspect]
     Indication: ASTHMA EXERCISE INDUCED
     Dosage: 160/4.5 MGS 2 PUFFS BID
     Route: 055
     Dates: start: 20070901
  2. PREVACID [Concomitant]
  3. LEXAPRO [Concomitant]
  4. MULTI-VITAMIN [Concomitant]
  5. CALCIUM [Concomitant]
  6. KLOR-CON [Concomitant]
  7. MAXZIDE [Concomitant]
  8. LASIX [Concomitant]
  9. DIAZEPAM [Concomitant]
  10. MAXAIR [Concomitant]
  11. NYSTATIN [Concomitant]

REACTIONS (1)
  - ASTHMA EXERCISE INDUCED [None]
